FAERS Safety Report 6568362-7 (Version None)
Quarter: 2010Q1

REPORT INFORMATION
  Report Type: 
  Country: None (occurrence: None)
  Receive Date: 20100203
  Receipt Date: 20100201
  Transmission Date: 20100710
  Serious: Yes (Other)
  Sender: FDA-Public Use
  Company Number: A0842274A

PATIENT
  Age: 55 Year
  Sex: Female

DRUGS (1)
  1. ALLI [Suspect]
     Indication: WEIGHT LOSS DIET
     Route: 048

REACTIONS (8)
  - BACTERIAL INFECTION [None]
  - DEFAECATION URGENCY [None]
  - DIARRHOEA [None]
  - GASTRITIS [None]
  - PAIN [None]
  - SEPSIS [None]
  - VAGINAL INFECTION [None]
  - VAGINAL INFLAMMATION [None]
